FAERS Safety Report 24684895 (Version 1)
Quarter: 2024Q4

REPORT INFORMATION
  Report Type: Spontaneous
  Country: US (occurrence: US)
  Receive Date: 20241202
  Receipt Date: 20241202
  Transmission Date: 20250115
  Serious: Yes (Other)
  Sender: AMGEN
  Company Number: US-AMGEN-USASP2024234900

PATIENT
  Age: 67 Year
  Sex: Female
  Weight: 56.7 kg

DRUGS (1)
  1. EVENITY [Suspect]
     Active Substance: ROMOSOZUMAB-AQQG
     Indication: Product used for unknown indication
     Dosage: UNK
     Route: 058
     Dates: start: 2024

REACTIONS (6)
  - Spinal fracture [Unknown]
  - Back pain [Not Recovered/Not Resolved]
  - Weight decreased [Unknown]
  - Intentional product misuse [Unknown]
  - Bone density decreased [Unknown]
  - Gastrointestinal disorder [Unknown]

NARRATIVE: CASE EVENT DATE: 20240101
